FAERS Safety Report 10965360 (Version 2)
Quarter: 2015Q2

REPORT INFORMATION
  Report Type: Spontaneous
  Country: US (occurrence: US)
  Receive Date: 20150330
  Receipt Date: 20150403
  Transmission Date: 20150821
  Serious: No
  Sender: FDA-Public Use
  Company Number: US-009507513-1503USA001703

PATIENT
  Sex: Female
  Weight: 57.6 kg

DRUGS (1)
  1. IMPLANON [Suspect]
     Active Substance: ETONOGESTREL
     Indication: CONTRACEPTION
     Dosage: 1 DF, UNK, 1 ROD FREQUENCY UNKNOWN
     Route: 059
     Dates: start: 20120214

REACTIONS (6)
  - Hypoaesthesia [Unknown]
  - Device difficult to use [Unknown]
  - Medical device complication [Unknown]
  - Device difficult to use [Unknown]
  - Neuralgia [Unknown]
  - Implant site swelling [Unknown]

NARRATIVE: CASE EVENT DATE: 20150219
